FAERS Safety Report 14927237 (Version 3)
Quarter: 2019Q2

REPORT INFORMATION
  Report Type: Spontaneous
  Country: US (occurrence: US)
  Receive Date: 20180523
  Receipt Date: 20190611
  Transmission Date: 20190711
  Serious: No
  Sender: FDA-Public Use
  Company Number: US-PFIZER INC-2018205253

PATIENT
  Age: 13 Year
  Sex: Male

DRUGS (4)
  1. VYVANSE [Concomitant]
     Active Substance: LISDEXAMFETAMINE DIMESYLATE
     Indication: ATTENTION DEFICIT/HYPERACTIVITY DISORDER
     Dosage: 30 MG, 1X/DAY
  2. GENOTROPIN [Suspect]
     Active Substance: SOMATROPIN
     Indication: BODY HEIGHT BELOW NORMAL
     Dosage: ALTERNATE DOSE OF 1.6MG AND 1.8MG, DAILY
     Dates: start: 20141027
  3. GENOTROPIN [Suspect]
     Active Substance: SOMATROPIN
     Dosage: 1.6 MG, DAILY
     Dates: start: 20141027
  4. GENOTROPIN [Suspect]
     Active Substance: SOMATROPIN
     Indication: BLOOD GROWTH HORMONE
     Dosage: UNK (TWICE SINCE SEP)

REACTIONS (12)
  - Wrong technique in device usage process [Unknown]
  - Mean cell haemoglobin concentration decreased [Unknown]
  - Blood alkaline phosphatase increased [Unknown]
  - Gynaecomastia [Unknown]
  - Alanine aminotransferase decreased [Unknown]
  - Blood chloride increased [Unknown]
  - Red cell distribution width increased [Unknown]
  - Blood bilirubin increased [Unknown]
  - Haemoglobin increased [Unknown]
  - Mean cell volume decreased [Unknown]
  - Product dose omission [Unknown]
  - Mean cell haemoglobin decreased [Unknown]

NARRATIVE: CASE EVENT DATE: 20180418
